FAERS Safety Report 9324037 (Version 2)
Quarter: 2013Q2

REPORT INFORMATION
  Report Type: Spontaneous
  Country: JP (occurrence: JP)
  Receive Date: 20130603
  Receipt Date: 20130613
  Transmission Date: 20140414
  Serious: Yes (Hospitalization)
  Sender: FDA-Public Use
  Company Number: JP-PFIZER INC-2013162571

PATIENT
  Age: 17 Year
  Sex: Female

DRUGS (1)
  1. ZITHROMAC [Suspect]
     Dosage: UNK
     Route: 048
     Dates: start: 2006

REACTIONS (1)
  - Cardiomyopathy [Unknown]
